FAERS Safety Report 8023375-3 (Version None)
Quarter: 2012Q1

REPORT INFORMATION
  Report Type: 
  Country: None (occurrence: None)
  Receive Date: 20120104
  Receipt Date: 20111229
  Transmission Date: 20120608
  Serious: Yes (Other)
  Sender: FDA-Public Use
  Company Number: US-PFIZER INC-2010080838

PATIENT
  Sex: Male
  Weight: 108.84 kg

DRUGS (1)
  1. INDERAL LA [Suspect]
     Indication: MIGRAINE
     Dosage: 80 MG, 1X/DAY
     Route: 048
     Dates: start: 19700101

REACTIONS (5)
  - WEIGHT INCREASED [None]
  - BLOOD PRESSURE INCREASED [None]
  - HEART RATE DECREASED [None]
  - OEDEMA PERIPHERAL [None]
  - BLOOD TRIGLYCERIDES INCREASED [None]
